FAERS Safety Report 5973472-9 (Version None)
Quarter: 2008Q4

REPORT INFORMATION
  Report Type: 
  Country: None (occurrence: None)
  Receive Date: 20081201
  Receipt Date: 20081121
  Transmission Date: 20090506
  Serious: Yes (Disabling, Other)
  Sender: FDA-Public Use
  Company Number: US-ALLERGAN-0808552US

PATIENT
  Sex: Female

DRUGS (6)
  1. BOTOX [Suspect]
     Indication: MIGRAINE
     Dosage: 50 UNITS, SINGLE
     Route: 030
     Dates: start: 20080201, end: 20080201
  2. PROPRANOLOL [Concomitant]
     Dosage: 20 MG, BID
  3. IBUPROFEN TABLETS [Concomitant]
     Dosage: 800 MG, TID
  4. FLEXERIL [Concomitant]
     Dosage: 10 MG, TID
  5. NEURONTIN [Concomitant]
     Dosage: 300 MG, QHS
  6. TOPAMAX [Concomitant]
     Dosage: 75 MG, BID

REACTIONS (8)
  - DRUG INEFFECTIVE [None]
  - EYE PAIN [None]
  - EYE PRURITUS [None]
  - EYELID PTOSIS [None]
  - LACRIMATION INCREASED [None]
  - MIGRAINE [None]
  - OPHTHALMOPLEGIA [None]
  - VISION BLURRED [None]
